FAERS Safety Report 4375792-0 (Version None)
Quarter: 2004Q2

REPORT INFORMATION
  Report Type: 
  Country: None (occurrence: None)
  Receive Date: 20040609
  Receipt Date: 20040609
  Transmission Date: 20050107
  Serious: Yes (Hospitalization)
  Sender: FDA-Public Use
  Company Number: None

PATIENT
  Sex: Male

DRUGS (7)
  1. ENALAPRIL [Suspect]
     Indication: HYPERTENSION
     Dosage: 7.5 MG PO Q12H
     Route: 048
     Dates: start: 20030310, end: 20040327
  2. DOCURATE [Concomitant]
  3. TEMAZEPAM [Concomitant]
  4. METOPROLOL TARTRATE [Concomitant]
  5. TERAZOSIN HCL [Concomitant]
  6. CEFEPINE [Concomitant]
  7. SENNA [Concomitant]

REACTIONS (6)
  - DROOLING [None]
  - DYSPHAGIA [None]
  - DYSPNOEA [None]
  - HAEMORRHAGE [None]
  - LOCAL SWELLING [None]
  - SWOLLEN TONGUE [None]
